FAERS Safety Report 4510477-9 (Version None)
Quarter: 2004Q4

REPORT INFORMATION
  Report Type: 
  Country: None (occurrence: None)
  Receive Date: 20041124
  Receipt Date: 20041112
  Transmission Date: 20050328
  Serious: Yes (Hospitalization)
  Sender: FDA-Public Use
  Company Number: FR-GLAXOSMITHKLINE-B0357254A

PATIENT
  Age: 55 Year
  Sex: Female

DRUGS (5)
  1. AVANDIA [Suspect]
     Dosage: 4MG PER DAY
     Route: 048
     Dates: start: 20040101, end: 20040101
  2. LEVOTHYROX [Concomitant]
     Dosage: 75MG PER DAY
     Route: 048
  3. MINIRIN [Concomitant]
     Dosage: .1MG TWICE PER DAY
     Route: 048
  4. ATARAX [Concomitant]
     Dosage: 25MG PER DAY
     Route: 048
  5. METFORMIN HCL [Concomitant]
     Dosage: 500MG THREE TIMES PER DAY
     Route: 048

REACTIONS (6)
  - ABDOMINAL PAIN UPPER [None]
  - ANOREXIA [None]
  - ASTHENIA [None]
  - HEADACHE [None]
  - INFLUENZA LIKE ILLNESS [None]
  - NAUSEA [None]
